FAERS Safety Report 24071246 (Version 1)
Quarter: 2024Q3

REPORT INFORMATION
  Report Type: Report from Study
  Country: US (occurrence: US)
  Receive Date: 20240710
  Receipt Date: 20240710
  Transmission Date: 20241016
  Serious: No
  Sender: ROCHE
  Company Number: US-ROCHE-3507700

PATIENT
  Age: 53 Year

DRUGS (1)
  1. EVRYSDI [Suspect]
     Active Substance: RISDIPLAM
     Indication: Lumbar spinal stenosis
     Route: 048
     Dates: start: 20231214

REACTIONS (2)
  - Off label use [Unknown]
  - No adverse event [Unknown]
